FAERS Safety Report 25570187 (Version 2)
Quarter: 2025Q3

REPORT INFORMATION
  Report Type: Spontaneous
  Country: CN (occurrence: CN)
  Receive Date: 20250717
  Receipt Date: 20250721
  Transmission Date: 20251020
  Serious: Yes (Hospitalization, Other)
  Sender: Haleon PLC
  Company Number: CN-HALEON-2252605

PATIENT
  Age: 33 Year
  Sex: Male

DRUGS (1)
  1. IBUPROFEN [Suspect]
     Active Substance: IBUPROFEN
     Indication: Pyrexia

REACTIONS (7)
  - Fatigue [Unknown]
  - Discomfort [Unknown]
  - Overdose [Unknown]
  - Acute kidney injury [Unknown]
  - Nausea [Unknown]
  - Dehydration [Unknown]
  - Back pain [Unknown]
